FAERS Safety Report 11318655 (Version 1)
Quarter: 2015Q3

REPORT INFORMATION
  Report Type: Spontaneous
  Country: BO (occurrence: BO)
  Receive Date: 20150729
  Receipt Date: 20150729
  Transmission Date: 20151125
  Serious: Yes (Death, Other)
  Sender: FDA-Public Use
  Company Number: BO-ROCHE-1612515

PATIENT
  Sex: Male

DRUGS (2)
  1. MABTHERA [Suspect]
     Active Substance: RITUXIMAB
     Indication: PRODUCT USED FOR UNKNOWN INDICATION
     Dosage: 100MG/10ML
     Route: 065
     Dates: start: 2001
  2. MABTHERA [Suspect]
     Active Substance: RITUXIMAB
     Dosage: 500MG/10ML
     Route: 065

REACTIONS (2)
  - Product counterfeit [Unknown]
  - Death [Fatal]
